FAERS Safety Report 7656669-1 (Version None)
Quarter: 2011Q3

REPORT INFORMATION
  Report Type: 
  Country: None (occurrence: None)
  Receive Date: 20110804
  Receipt Date: 20110801
  Transmission Date: 20111222
  Serious: Yes (Hospitalization, Disabling)
  Sender: FDA-Public Use
  Company Number: US-MERCK-1003USA01388

PATIENT
  Age: 78 Year
  Sex: Female

DRUGS (4)
  1. ZANTAC [Concomitant]
     Route: 065
  2. BACLOFEN [Concomitant]
     Route: 065
  3. FOSAMAX [Suspect]
     Indication: OSTEOPOROSIS
     Route: 048
     Dates: start: 20070101
  4. BACTRIM [Concomitant]
     Route: 065

REACTIONS (6)
  - FEMUR FRACTURE [None]
  - FALL [None]
  - STRESS FRACTURE [None]
  - IMPAIRED HEALING [None]
  - OSTEOPOROSIS [None]
  - LOW TURNOVER OSTEOPATHY [None]
